FAERS Safety Report 20946560 (Version 1)
Quarter: 2022Q2

REPORT INFORMATION
  Report Type: Spontaneous
  Country: US (occurrence: None)
  Receive Date: 20220610
  Receipt Date: 20220610
  Transmission Date: 20220721
  Serious: Yes (Hospitalization)
  Sender: FDA-Public Use
  Company Number: None

PATIENT
  Age: 53 Year
  Sex: Female

DRUGS (1)
  1. CAPECITABINE [Suspect]
     Active Substance: CAPECITABINE
     Dosage: 1500 MG BID ORAL
     Route: 048
     Dates: start: 20220525, end: 20220602

REACTIONS (6)
  - Angina pectoris [None]
  - Arthralgia [None]
  - Back pain [None]
  - Abdominal pain [None]
  - Painful respiration [None]
  - Insomnia [None]

NARRATIVE: CASE EVENT DATE: 20220610
